FAERS Safety Report 12978146 (Version 1)
Quarter: 2016Q4

REPORT INFORMATION
  Report Type: Spontaneous
  Country: AU (occurrence: US)
  Receive Date: 20161128
  Receipt Date: 20161128
  Transmission Date: 20170207
  Serious: Yes (Hospitalization, Other)
  Sender: FDA-Public Use
  Company Number: AU-BAYER-2016-222143

PATIENT
  Sex: Female

DRUGS (9)
  1. HEPARIN [Interacting]
     Active Substance: HEPARIN SODIUM
     Dosage: 7500 U, BID AT 12 WEEKS GESTATION
     Route: 058
  2. HEPARIN [Interacting]
     Active Substance: HEPARIN SODIUM
     Dosage: 11250 U, BID
     Route: 058
  3. IMMUNOGLOBULIN [IMMUNOGLOBULIN] [Concomitant]
     Active Substance: HUMAN IMMUNOGLOBULIN G
     Dosage: 1 G/KG, Q2WK
     Route: 017
  4. ACETYLSALICYLIC ACID({=100 MG) [Suspect]
     Active Substance: ASPIRIN
     Dosage: 81 MG, QD
     Dates: start: 2001
  5. HEPARIN [Interacting]
     Active Substance: HEPARIN SODIUM
     Dosage: 10000 U, BID
     Route: 058
  6. IMMUNOGLOBULIN [IMMUNOGLOBULIN] [Concomitant]
     Active Substance: HUMAN IMMUNOGLOBULIN G
     Dosage: 1G/KG, Q4WK
     Route: 017
  7. IMMUNOGLOBULIN [IMMUNOGLOBULIN] [Concomitant]
     Active Substance: HUMAN IMMUNOGLOBULIN G
     Dosage: 1 G/KG, Q2WK
     Route: 017
  8. HEPARIN [Interacting]
     Active Substance: HEPARIN SODIUM
     Dosage: 5000 U, BID
     Route: 058
  9. HEPARIN [Interacting]
     Active Substance: HEPARIN SODIUM
     Dosage: 15000 U, BID AT 15 WEEKS GESTATION
     Route: 058

REACTIONS (12)
  - Oligohydramnios [Recovered/Resolved]
  - Abdominal pain lower [None]
  - Drug administration error [None]
  - Umbilical cord vascular disorder [None]
  - Labelled drug-drug interaction medication error [None]
  - Placental disorder [None]
  - Foetal growth restriction [None]
  - Haemorrhagic ovarian cyst [None]
  - Haemoglobin decreased [None]
  - Premature labour [None]
  - Polycystic ovaries [None]
  - Maternal exposure during pregnancy [None]
